FAERS Safety Report 4314074-X (Version None)
Quarter: 2004Q1

REPORT INFORMATION
  Report Type: 
  Country: None (occurrence: None)
  Receive Date: 20040308
  Receipt Date: 20040308
  Transmission Date: 20041129
  Serious: Yes (Life-Threatening)
  Sender: FDA-Public Use
  Company Number: None

PATIENT
  Age: 48 Year
  Sex: Male
  Weight: 90.7194 kg

DRUGS (1)
  1. LISINOPRIL  20 MG  LEK PHARMACEUTICAL [Suspect]
     Dosage: 20 MG ONCE DAILY ORAL
     Route: 048
     Dates: start: 20040229, end: 20040306

REACTIONS (1)
  - BLOOD PRESSURE INCREASED [None]
